FAERS Safety Report 8522121-4 (Version None)
Quarter: 2012Q3

REPORT INFORMATION
  Report Type: 
  Country: None (occurrence: None)
  Receive Date: 20120719
  Receipt Date: 20120717
  Transmission Date: 20120928
  Serious: Yes (Hospitalization)
  Sender: FDA-Public Use
  Company Number: US-TEVA-2011005690

PATIENT
  Sex: Female
  Weight: 68 kg

DRUGS (8)
  1. TREANDA [Suspect]
     Route: 042
     Dates: start: 20111018, end: 20111019
  2. DEXAMETHASONE [Suspect]
     Indication: MULTIPLE MYELOMA
     Dates: start: 20110906
  3. ASPIRIN [Concomitant]
  4. GRANISETRON [Concomitant]
  5. PROTONIX [Concomitant]
  6. LENALIDOMIDE [Suspect]
     Indication: MULTIPLE MYELOMA
     Dates: start: 20110906
  7. TREANDA [Suspect]
     Indication: MULTIPLE MYELOMA
     Route: 042
     Dates: start: 20110906, end: 20110907
  8. LOMOTIL [Concomitant]

REACTIONS (2)
  - SUBARACHNOID HAEMORRHAGE [None]
  - CHEST PAIN [None]
